FAERS Safety Report 25179599 (Version 1)
Quarter: 2025Q2

REPORT INFORMATION
  Report Type: Report from Study
  Country: US (occurrence: US)
  Receive Date: 20250409
  Receipt Date: 20250409
  Transmission Date: 20250717
  Serious: No
  Sender: BIOVITRUM
  Company Number: US-BIOVITRUM-2025-US-004330

PATIENT
  Age: 35 Year
  Sex: Female

DRUGS (1)
  1. KINERET [Suspect]
     Active Substance: ANAKINRA
     Indication: Still^s disease
     Route: 058
     Dates: start: 20250318

REACTIONS (7)
  - Injection site pain [Unknown]
  - Off label use [Not Recovered/Not Resolved]
  - Injection site urticaria [Unknown]
  - Injection site erythema [Unknown]
  - Nausea [Unknown]
  - Abdominal pain upper [Unknown]
  - Discomfort [Unknown]

NARRATIVE: CASE EVENT DATE: 20250318
